FAERS Safety Report 6865673-2 (Version None)
Quarter: 2010Q3

REPORT INFORMATION
  Report Type: 
  Country: None (occurrence: None)
  Receive Date: 20100721
  Receipt Date: 20080429
  Transmission Date: 20110219
  Serious: Yes (Other)
  Sender: FDA-Public Use
  Company Number: US-PFIZER INC-2008038337

PATIENT
  Sex: Female
  Weight: 99.8 kg

DRUGS (37)
  1. CHANTIX [Suspect]
     Indication: SMOKING CESSATION THERAPY
     Route: 048
     Dates: start: 20080417
  2. METHOTREXATE [Concomitant]
     Indication: PSORIATIC ARTHROPATHY
  3. METHOTREXATE [Concomitant]
  4. METFORMIN [Concomitant]
     Indication: DIABETES MELLITUS
  5. METFORMIN [Concomitant]
  6. NEURONTIN [Concomitant]
     Indication: NEURALGIA
  7. NEURONTIN [Concomitant]
  8. VYTORIN [Concomitant]
     Indication: BLOOD CHOLESTEROL
  9. LISINOPRIL [Concomitant]
     Indication: HYPERTENSION
  10. LISINOPRIL [Concomitant]
  11. CLONIDINE [Concomitant]
  12. CLONIDINE [Concomitant]
  13. IBUPROFEN [Concomitant]
     Indication: FIBROMYALGIA
  14. IBUPROFEN [Concomitant]
  15. ZOLPIDEM TARTRATE [Concomitant]
  16. ZOLPIDEM TARTRATE [Concomitant]
  17. ABILIFY [Concomitant]
  18. CLONAZEPAM [Concomitant]
  19. CLONAZEPAM [Concomitant]
  20. LORAZEPAM [Concomitant]
  21. LORAZEPAM [Concomitant]
  22. EFFEXOR XR [Concomitant]
  23. EFFEXOR XR [Concomitant]
  24. LEXAPRO [Concomitant]
  25. LEXAPRO [Concomitant]
  26. TRAZODONE HYDROCHLORIDE [Concomitant]
  27. TRAZODONE HYDROCHLORIDE [Concomitant]
  28. PRILOSEC [Concomitant]
     Indication: GASTROOESOPHAGEAL REFLUX DISEASE
  29. PRILOSEC [Concomitant]
  30. ALBUTEROL [Concomitant]
  31. ALBUTEROL [Concomitant]
  32. MONTELUKAST SODIUM [Concomitant]
  33. MONTELUKAST SODIUM [Concomitant]
  34. ADVAIR DISKUS 100/50 [Concomitant]
  35. SPIRIVA [Concomitant]
  36. SPIRIVA [Concomitant]
  37. REGLAN [Concomitant]

REACTIONS (4)
  - ERYTHEMA [None]
  - RASH PAPULAR [None]
  - RASH PRURITIC [None]
  - WOUND [None]
